FAERS Safety Report 4414515-3 (Version None)
Quarter: 2004Q2

REPORT INFORMATION
  Report Type: 
  Country: None (occurrence: None)
  Receive Date: 20040630
  Receipt Date: 20040429
  Transmission Date: 20050107
  Serious: Yes (Other)
  Sender: FDA-Public Use
  Company Number: 2004029256

PATIENT
  Sex: Female
  Weight: 102.0593 kg

DRUGS (5)
  1. ZOLOFT [Suspect]
     Indication: DEPRESSION
     Dates: start: 20040401, end: 20040426
  2. SALBUTAMOL (SALBUTAMOL) [Concomitant]
  3. ALL OTHER THERAPEUTIC PRODUCTS (ALL OTHER THERAPEUTIC PRODUCTS) [Concomitant]
  4. GABAPENTIN [Concomitant]
  5. VICODIN [Concomitant]

REACTIONS (4)
  - BLOOD POTASSIUM DECREASED [None]
  - CONVULSION [None]
  - DIARRHOEA [None]
  - VOMITING [None]
